FAERS Safety Report 7249705-8 (Version None)
Quarter: 2011Q1

REPORT INFORMATION
  Report Type: 
  Country: None (occurrence: None)
  Receive Date: 20110128
  Receipt Date: 20110119
  Transmission Date: 20110831
  Serious: Yes (Other)
  Sender: FDA-Public Use
  Company Number: CA-JNJFOC-20110105568

PATIENT
  Sex: Male
  Weight: 77.11 kg

DRUGS (8)
  1. GABAPENTIN [Concomitant]
  2. REMICADE [Suspect]
     Indication: CROHN'S DISEASE
     Route: 042
  3. IMURAN [Concomitant]
  4. TECTA [Concomitant]
  5. AZATHIOPRINE [Concomitant]
     Dosage: 50 MG 3 1/2 TABS OD
  6. METFORMIN [Concomitant]
  7. DITROPAN [Concomitant]
  8. GENTEAL TEARS [Concomitant]

REACTIONS (2)
  - DEPRESSION [None]
  - WEIGHT DECREASED [None]
